FAERS Safety Report 4946171-X (Version None)
Quarter: 2006Q1

REPORT INFORMATION
  Report Type: 
  Country: None (occurrence: None)
  Receive Date: 20060118
  Receipt Date: 20050513
  Transmission Date: 20060701
  Serious: Yes (Other)
  Sender: FDA-Public Use
  Company Number: US-JNJFCO-20050404355

PATIENT
  Age: 55 Year
  Sex: Female

DRUGS (6)
  1. DOXIL [Suspect]
     Indication: OVARIAN CANCER
     Dosage: SEE IMAGE
     Route: 042
     Dates: start: 20050103, end: 20050126
  2. DOXIL [Suspect]
     Indication: OVARIAN CANCER
     Dosage: SEE IMAGE
     Route: 042
     Dates: start: 20050307, end: 20050328
  3. PYRIDOXINE (PYRIDOXINE) [Concomitant]
  4. PREDNISONE TAB [Concomitant]
  5. ZYRTEC [Concomitant]
  6. COUMADIN [Concomitant]

REACTIONS (1)
  - PALMAR-PLANTAR ERYTHRODYSAESTHESIA SYNDROME [None]
